FAERS Safety Report 5765050-1 (Version None)
Quarter: 2008Q2

REPORT INFORMATION
  Report Type: 
  Country: None (occurrence: None)
  Receive Date: 20080611
  Receipt Date: 20080528
  Transmission Date: 20081010
  Serious: Yes (Hospitalization)
  Sender: FDA-Public Use
  Company Number: US-BAYER-200815642NA

PATIENT
  Sex: Female

DRUGS (4)
  1. BETASERON [Suspect]
     Indication: DRUG USE FOR UNKNOWN INDICATION
     Dates: start: 20010101, end: 20010101
  2. BETASERON [Suspect]
     Dates: start: 20071101, end: 20071201
  3. VITAMIN B-12 [Concomitant]
  4. MAGNESIUM [Concomitant]

REACTIONS (2)
  - ABASIA [None]
  - MULTIPLE SCLEROSIS RELAPSE [None]
